FAERS Safety Report 4401012-4 (Version None)
Quarter: 2004Q3

REPORT INFORMATION
  Report Type: 
  Country: None (occurrence: None)
  Receive Date: 20040907
  Receipt Date: 20030917
  Transmission Date: 20050211
  Serious: No
  Sender: FDA-Public Use
  Company Number: US-BRISTOL-MYERS SQUIBB COMPANY-12387148

PATIENT
  Age: 74 Year
  Sex: Female
  Weight: 42 kg

DRUGS (5)
  1. COUMADIN [Suspect]
     Indication: MITRAL VALVE REPLACEMENT
     Dosage: INITIAL DOSE:3MG + 2MG QD; INCREASE TO 4MG QD; 9/16/03:3MG QD 2X'S/WEEK + 4MG QD 5X'S/WEEK
     Route: 048
     Dates: start: 20021201
  2. ATACAND [Concomitant]
  3. FOLIC ACID [Concomitant]
  4. MAGNESIUM [Concomitant]
  5. ACIPHEX [Concomitant]
     Dosage: TAKING FOR A SHORT TIME WHILE ON WARFARIN SODIUM

REACTIONS (4)
  - DIARRHOEA [None]
  - HYPERTENSION [None]
  - PRURITUS [None]
  - STOMATITIS [None]
